FAERS Safety Report 15232982 (Version 2)
Quarter: 2018Q3

REPORT INFORMATION
  Report Type: Report from Study
  Country: FR (occurrence: FR)
  Receive Date: 20180802
  Receipt Date: 20180815
  Transmission Date: 20181010
  Serious: Yes (Death, Hospitalization, Other)
  Sender: FDA-Public Use
  Company Number: FR-BRISTOL-MYERS SQUIBB COMPANY-BMS-2018-063224

PATIENT
  Age: 81 Year
  Sex: Female

DRUGS (2)
  1. SOLUPRED                           /00016201/ [Concomitant]
     Active Substance: PREDNISOLONE
     Indication: HEPATIC ENZYME INCREASED
     Dosage: UNK
     Route: 048
     Dates: start: 20180613
  2. NIVOLUMAB [Suspect]
     Active Substance: NIVOLUMAB
     Indication: PAGET^S DISEASE OF THE VULVA
     Dosage: 240 MG, Q2WK
     Route: 042
     Dates: start: 20180502, end: 20180626

REACTIONS (7)
  - Gamma-glutamyltransferase increased [Not Recovered/Not Resolved]
  - Hepatocellular injury [Unknown]
  - Alanine aminotransferase increased [Not Recovered/Not Resolved]
  - Blood bilirubin increased [Not Recovered/Not Resolved]
  - Malignant neoplasm progression [Unknown]
  - General physical condition abnormal [Fatal]
  - Aspartate aminotransferase increased [Not Recovered/Not Resolved]

NARRATIVE: CASE EVENT DATE: 20180703
